FAERS Safety Report 4512687-3 (Version None)
Quarter: 2004Q4

REPORT INFORMATION
  Report Type: 
  Country: None (occurrence: None)
  Receive Date: 20041012
  Receipt Date: 20040504
  Transmission Date: 20050328
  Serious: No
  Sender: FDA-Public Use
  Company Number: A03200401402

PATIENT
  Age: 55 Year
  Sex: Male
  Weight: 220 kg

DRUGS (5)
  1. UROXATRAL [Suspect]
     Indication: BENIGN PROSTATIC HYPERPLASIA
     Dosage: 10 MG OD, ORAL
     Route: 048
     Dates: start: 20040209, end: 20040426
  2. UROXATRAL [Suspect]
     Indication: URINARY TRACT DISORDER
     Dosage: 10 MG OD, ORAL
     Route: 048
     Dates: start: 20040209, end: 20040426
  3. METOPROLOL SUCCINATE [Concomitant]
  4. DIGOXIN [Concomitant]
  5. ACETYLSALICYLIC ACID [Concomitant]

REACTIONS (1)
  - PALPITATIONS [None]
